FAERS Safety Report 7451116-7 (Version None)
Quarter: 2011Q2

REPORT INFORMATION
  Report Type: 
  Country: None (occurrence: None)
  Receive Date: 20110429
  Receipt Date: 20110429
  Transmission Date: 20111010
  Serious: Yes (Death, Hospitalization)
  Sender: FDA-Public Use
  Company Number: None

PATIENT
  Age: 74 Year
  Sex: Male
  Weight: 116.3 kg

DRUGS (12)
  1. JANUVIA [Concomitant]
  2. LABETALOL HCL [Concomitant]
  3. PROZAC [Concomitant]
  4. LANTUS [Concomitant]
  5. COUMADIN [Suspect]
     Indication: THROMBOSIS PROPHYLAXIS
     Dosage: 5MG 5 DAYS A WEEK PO CHRONIC
     Route: 048
  6. COUMADIN [Suspect]
     Dosage: 2.5 MG 2 DAYS A WEEK PO CHRONIC
     Route: 048
  7. ASPART [Concomitant]
  8. CRESTOR [Concomitant]
  9. GLIPIZIDE [Concomitant]
  10. METFORMIN HCL [Concomitant]
  11. ATACAND [Concomitant]
  12. SENOKOT [Concomitant]

REACTIONS (3)
  - INTERNATIONAL NORMALISED RATIO INCREASED [None]
  - UNRESPONSIVE TO STIMULI [None]
  - SUBDURAL HAEMATOMA [None]
